FAERS Safety Report 6834728-0 (Version None)
Quarter: 2010Q3

REPORT INFORMATION
  Report Type: 
  Country: None (occurrence: None)
  Receive Date: 20100712
  Receipt Date: 20070410
  Transmission Date: 20110219
  Serious: No
  Sender: FDA-Public Use
  Company Number: US-PFIZER INC-2007029686

PATIENT
  Sex: Female
  Weight: 68.04 kg

DRUGS (9)
  1. CHANTIX [Suspect]
     Indication: SMOKING CESSATION THERAPY
     Route: 048
     Dates: start: 20070401
  2. VYTORIN [Concomitant]
     Route: 048
  3. QUININE SULFATE [Concomitant]
     Route: 048
  4. ENALAPRIL MALEATE [Concomitant]
     Route: 048
  5. NEXIUM [Concomitant]
     Route: 048
  6. CELEBREX [Concomitant]
     Route: 048
  7. CLOPIDOGREL [Concomitant]
     Route: 048
  8. HYDROCHLOROTHIAZIDE [Concomitant]
     Route: 048
  9. ACETYLSALICYLIC ACID [Concomitant]
     Route: 048

REACTIONS (4)
  - ASTHENIA [None]
  - DECREASED APPETITE [None]
  - PRESYNCOPE [None]
  - VOMITING [None]
